FAERS Safety Report 8309284-0 (Version None)
Quarter: 2012Q2

REPORT INFORMATION
  Report Type: 
  Country: None (occurrence: None)
  Receive Date: 20120424
  Receipt Date: 20120402
  Transmission Date: 20120825
  Serious: Yes (Other)
  Sender: FDA-Public Use
  Company Number: PHEH2012US007694

PATIENT
  Sex: Female
  Weight: 65.76 kg

DRUGS (15)
  1. IBUPROFEN (ADVIL) [Concomitant]
     Indication: PAIN
     Dosage: 1 DF, Q8H, PRN
     Route: 048
  2. VOTRIENT [Concomitant]
     Dosage: 1 DF, QID
     Route: 048
  3. AFINITOR [Suspect]
     Indication: RENAL CANCER METASTATIC
     Dosage: 10 MG, QD
     Route: 048
     Dates: start: 20120126, end: 20120222
  4. ATIVAN [Concomitant]
     Dosage: 1 MG, Q4H, PRN
     Route: 048
  5. ULTRAM [Concomitant]
     Route: 048
  6. AMBIEN CR [Concomitant]
     Dosage: 6.25 MG, UNK
  7. ATIVAN [Concomitant]
     Indication: NAUSEA
     Dosage: 0.5 MG, UNK
     Route: 048
  8. NORCO [Concomitant]
     Indication: PAIN
     Dosage: 1 DF, Q4H, PRN
     Route: 048
  9. ZOFRAN [Concomitant]
     Indication: NAUSEA
     Dosage: 1 DF, Q8H
     Route: 048
  10. MORPHINE [Concomitant]
     Dosage: 1 DF, Q12H
     Route: 048
     Dates: start: 20120222
  11. LORTAB [Concomitant]
  12. LUNESTA [Concomitant]
     Route: 048
  13. ZOMETA [Concomitant]
  14. TRAMADOL HCL [Concomitant]
     Dosage: 50 MG, UNK
  15. BIOPLEX MOUTHWASH [Concomitant]

REACTIONS (20)
  - NEOPLASM PROGRESSION [None]
  - BLOOD ALKALINE PHOSPHATASE DECREASED [None]
  - DRUG INEFFECTIVE [None]
  - NAUSEA [None]
  - RED BLOOD CELL COUNT DECREASED [None]
  - WHITE BLOOD CELL COUNT DECREASED [None]
  - MOUTH ULCERATION [None]
  - ARTHRALGIA [None]
  - NEOPLASM MALIGNANT [None]
  - PAIN [None]
  - PROTEIN TOTAL INCREASED [None]
  - DIARRHOEA [None]
  - HYPERLIPIDAEMIA [None]
  - ASPARTATE AMINOTRANSFERASE INCREASED [None]
  - GLOMERULAR FILTRATION RATE DECREASED [None]
  - FATIGUE [None]
  - GAIT DISTURBANCE [None]
  - GLOBULINS INCREASED [None]
  - ALANINE AMINOTRANSFERASE INCREASED [None]
  - NEUTROPENIA [None]
